FAERS Safety Report 22175729 (Version 6)
Quarter: 2023Q2

REPORT INFORMATION
  Report Type: Other
  Country: IT (occurrence: None)
  Receive Date: 20230405
  Receipt Date: 20230602
  Transmission Date: 20230721
  Serious: Yes (Hospitalization)
  Sender: FDA-Public Use
  Company Number: IT-ROCHE-3314499

PATIENT
  Age: 65 Year
  Sex: Female
  Weight: 61 kg

DRUGS (29)
  1. ALECTINIB [Suspect]
     Active Substance: ALECTINIB
     Indication: Non-small cell lung cancer
     Dosage: DOSE LAST STUDY DRUG ADMIN PRIOR AE/SAE WAS 600 MG. START DATE OF MOST RECENT DOSE OF STUDY DRUG PRI
     Route: 048
     Dates: start: 20221201
  2. VARCODES [Concomitant]
     Indication: Hypertension
     Route: 048
     Dates: end: 20221201
  3. VARCODES [Concomitant]
     Route: 048
     Dates: start: 20221202
  4. PANTOPRAZOLE [Concomitant]
     Active Substance: PANTOPRAZOLE
     Indication: Prophylaxis
     Route: 048
  5. RAMIPRIL [Concomitant]
     Active Substance: RAMIPRIL
     Indication: Hypertension
     Route: 048
  6. ATENOLOL [Concomitant]
     Active Substance: ATENOLOL
     Indication: Hypertension
     Route: 048
  7. ASPIRIN [Concomitant]
     Active Substance: ASPIRIN
     Indication: Prophylaxis
     Route: 048
     Dates: start: 20221201
  8. EMPAGLIFLOZIN [Concomitant]
     Active Substance: EMPAGLIFLOZIN
     Indication: Diabetes mellitus
     Route: 048
  9. LEVOTHYROXINE SODIUM [Concomitant]
     Active Substance: LEVOTHYROXINE SODIUM
     Indication: Hypothyroidism
     Route: 048
     Dates: end: 20230201
  10. LEVOTHYROXINE SODIUM [Concomitant]
     Active Substance: LEVOTHYROXINE SODIUM
     Route: 048
     Dates: start: 20230201
  11. METFORMIN HYDROCHLORIDE [Concomitant]
     Active Substance: METFORMIN HYDROCHLORIDE
     Indication: Diabetes mellitus
     Route: 048
  12. AMLODIPINE [Concomitant]
     Active Substance: AMLODIPINE BESYLATE
     Indication: Hypertension
     Route: 048
     Dates: start: 20221201, end: 20221214
  13. DOXYCYCLINE [Concomitant]
     Active Substance: DOXYCYCLINE
     Indication: Prophylaxis
     Route: 048
     Dates: start: 20221221
  14. LYRICA [Concomitant]
     Active Substance: PREGABALIN
     Indication: Prophylaxis
     Route: 048
     Dates: start: 20230201
  15. MECLON [Concomitant]
     Indication: Candida infection
     Dosage: 1 OTHER
     Route: 067
     Dates: start: 20230210, end: 20230217
  16. FLUCONAZOLE [Concomitant]
     Active Substance: FLUCONAZOLE
     Indication: Candida infection
     Route: 048
     Dates: start: 20230210, end: 20230217
  17. HUMALOG [Concomitant]
     Active Substance: INSULIN LISPRO
     Indication: Diabetes mellitus
     Route: 058
     Dates: start: 20230205
  18. DEXAMETHASONE [Concomitant]
     Active Substance: DEXAMETHASONE
     Route: 048
     Dates: start: 20220222, end: 20230316
  19. PREGABALIN [Concomitant]
     Active Substance: PREGABALIN
     Indication: Pain
     Route: 048
     Dates: start: 20230222, end: 20230316
  20. FUROSEMIDE [Concomitant]
     Active Substance: FUROSEMIDE
     Indication: Urinary retention
     Route: 048
     Dates: start: 20230222, end: 20230316
  21. CEFTRIAXONE [Concomitant]
     Active Substance: CEFTRIAXONE
     Indication: Sepsis
     Route: 042
     Dates: start: 20230205, end: 20230222
  22. BACTRIM [Concomitant]
     Active Substance: SULFAMETHOXAZOLE\TRIMETHOPRIM
     Indication: Sepsis
     Route: 048
     Dates: start: 20230205, end: 20230222
  23. MORPHINE [Concomitant]
     Active Substance: MORPHINE
     Indication: Pain
     Route: 048
     Dates: start: 20230205, end: 20230222
  24. FENTANYL [Concomitant]
     Active Substance: FENTANYL
     Indication: Pain
     Route: 061
     Dates: start: 20230205, end: 20230222
  25. GLARINE [Concomitant]
     Indication: Diabetes mellitus
     Route: 058
     Dates: start: 20230205, end: 20230330
  26. GLARINE [Concomitant]
     Route: 058
     Dates: start: 20230330
  27. DEXAMETHASONE [Concomitant]
     Active Substance: DEXAMETHASONE
     Route: 048
     Dates: start: 20220222, end: 20230316
  28. INSULIN NOS [Concomitant]
     Active Substance: INSULIN NOS
     Indication: Diabetes mellitus
     Route: 058
     Dates: start: 20230205, end: 20230330
  29. INSULIN NOS [Concomitant]
     Active Substance: INSULIN NOS
     Route: 058
     Dates: start: 20230330

REACTIONS (3)
  - Ulcer [Not Recovered/Not Resolved]
  - Oedema [Not Recovered/Not Resolved]
  - Infected skin ulcer [Recovered/Resolved]

NARRATIVE: CASE EVENT DATE: 20221214
